FAERS Safety Report 4335155-0 (Version None)
Quarter: 2004Q1

REPORT INFORMATION
  Report Type: 
  Country: None (occurrence: None)
  Receive Date: 20040329
  Receipt Date: 20031210
  Transmission Date: 20041129
  Serious: No
  Sender: FDA-Public Use
  Company Number: 03P-163-0244217-00

PATIENT
  Age: 56 Year
  Sex: Female

DRUGS (9)
  1. HUMIRA [Suspect]
     Indication: RHEUMATOID ARTHRITIS
     Dosage: 40 MG, 1 IN 2 WK, SUBCUTANEOUS
     Route: 058
     Dates: start: 20031101
  2. METHOTREXATE SODIUM [Concomitant]
  3. LEFLUNOMIDE [Concomitant]
  4. PREDNISONE [Concomitant]
  5. FOLIC ACID [Concomitant]
  6. POTASSIUM [Concomitant]
  7. WATER PILL [Concomitant]
  8. THYROID PILL [Concomitant]
  9. SIMVASTATIN [Concomitant]

REACTIONS (7)
  - COUGH [None]
  - DERMATITIS EXFOLIATIVE [None]
  - FATIGUE [None]
  - HEADACHE [None]
  - INJECTION SITE BURNING [None]
  - NAUSEA [None]
  - RASH [None]
